FAERS Safety Report 6412435-6 (Version None)
Quarter: 2009Q4

REPORT INFORMATION
  Report Type: 
  Country: None (occurrence: None)
  Receive Date: 20091023
  Receipt Date: 20091021
  Transmission Date: 20100525
  Serious: Yes (Hospitalization)
  Sender: FDA-Public Use
  Company Number: GB-MERCK-0910GBR00072

PATIENT
  Age: 61 Year
  Sex: Male

DRUGS (2)
  1. FOSAMAX [Suspect]
     Indication: OSTEOPOROSIS
     Route: 048
     Dates: start: 20050101, end: 20070101
  2. FOSAMAX [Suspect]
     Route: 048
     Dates: start: 20070101

REACTIONS (5)
  - DRUG ADMINISTRATION ERROR [None]
  - DYSPEPSIA [None]
  - GASTROINTESTINAL DISORDER [None]
  - PNEUMONIA [None]
  - RENAL FAILURE [None]
